FAERS Safety Report 8151964-4 (Version None)
Quarter: 2012Q1

REPORT INFORMATION
  Report Type: 
  Country: None (occurrence: None)
  Receive Date: 20120221
  Receipt Date: 20120215
  Transmission Date: 20120608
  Serious: No
  Sender: FDA-Public Use
  Company Number: US-PFIZER INC-2012041140

PATIENT
  Sex: Female
  Weight: 92.063 kg

DRUGS (6)
  1. TETRACYCLINE [Suspect]
     Dosage: UNK
  2. PHENOBARBITAL TAB [Suspect]
     Dosage: UNK
  3. MAXALT [Suspect]
     Dosage: UNK
  4. DILANTIN-125 [Suspect]
     Dosage: UNK
  5. ERYTHROMYCIN ETHYLSUCCINATE [Suspect]
     Dosage: UNK
  6. TEGRETOL [Suspect]
     Dosage: UNK

REACTIONS (1)
  - DRUG HYPERSENSITIVITY [None]
